FAERS Safety Report 25281091 (Version 3)
Quarter: 2025Q2

REPORT INFORMATION
  Report Type: Report from Study
  Country: US (occurrence: US)
  Receive Date: 20250508
  Receipt Date: 20250528
  Transmission Date: 20250716
  Serious: Yes (Other)
  Sender: EXELIXIS
  Company Number: US-EXELIXIS-EXL-2025-007308

PATIENT
  Age: 66 Year
  Sex: Male

DRUGS (18)
  1. CABOMETYX [Suspect]
     Active Substance: CABOZANTINIB S-MALATE
     Indication: Clear cell renal cell carcinoma
     Dosage: 40 MG, QD
     Dates: start: 20241227, end: 20250114
  2. NIVOLUMAB [Suspect]
     Active Substance: NIVOLUMAB
     Indication: Clear cell renal cell carcinoma
     Dosage: 480 MG, Q4WEEKS
     Dates: start: 20250103
  3. ASPIRIN [Concomitant]
     Active Substance: ASPIRIN
  4. LIPITOR [Concomitant]
     Active Substance: ATORVASTATIN CALCIUM
  5. ATACAND [Concomitant]
     Active Substance: CANDESARTAN CILEXETIL
  6. FOLVITE [Concomitant]
     Active Substance: FOLIC ACID
  7. HYDROCHLOROTHIAZIDE [Concomitant]
     Active Substance: HYDROCHLOROTHIAZIDE
  8. PRINIVIL [Concomitant]
     Active Substance: LISINOPRIL
  9. ZESTRIL [Concomitant]
     Active Substance: LISINOPRIL
  10. NARCAN [Concomitant]
     Active Substance: NALOXONE HYDROCHLORIDE
  11. ADALAT CC [Concomitant]
     Active Substance: NIFEDIPINE
  12. PERI-COLACE [Concomitant]
     Active Substance: CASANTHRANOL\DOCUSATE SODIUM
  13. VITAMIN B1 [Concomitant]
     Active Substance: THIAMINE HYDROCHLORIDE
  14. GLYDO [Concomitant]
     Active Substance: LIDOCAINE HYDROCHLORIDE ANHYDROUS
  15. ROBAXIN [Concomitant]
     Active Substance: METHOCARBAMOL
  16. ROXICODONE [Concomitant]
     Active Substance: OXYCODONE HYDROCHLORIDE
  17. MIRALAX [Concomitant]
     Active Substance: POLYETHYLENE GLYCOL 3350
  18. FLOMAX [Concomitant]
     Active Substance: TAMSULOSIN HYDROCHLORIDE

REACTIONS (11)
  - Transient ischaemic attack [Recovered/Resolved]
  - Malignant pleural effusion [Unknown]
  - Arteriosclerosis coronary artery [Unknown]
  - Aortic arteriosclerosis [Unknown]
  - Pericardial effusion [Unknown]
  - Malignant neoplasm progression [Unknown]
  - Sinus disorder [Unknown]
  - Atelectasis [Unknown]
  - Lymphadenopathy mediastinal [Unknown]
  - Glomerular filtration rate decreased [Unknown]
  - Memory impairment [Unknown]

NARRATIVE: CASE EVENT DATE: 20250101
